FAERS Safety Report 22619551 (Version 1)
Quarter: 2023Q2

REPORT INFORMATION
  Report Type: Spontaneous
  Country: DE (occurrence: DE)
  Receive Date: 20230620
  Receipt Date: 20230620
  Transmission Date: 20230722
  Serious: Yes (Hospitalization, Other)
  Sender: FDA-Public Use
  Company Number: DE-BFARM-11214271

PATIENT
  Age: 41 Year
  Sex: Male

DRUGS (10)
  1. LAMOTRIGINE [Suspect]
     Active Substance: LAMOTRIGINE
     Indication: Product used for unknown indication
     Dosage: 300 MILLIGRAM, ONCE A DAY
     Route: 048
     Dates: start: 201006
  2. LAMOTRIGINE [Suspect]
     Active Substance: LAMOTRIGINE
     Dosage: 200 MILLIGRAM, ONCE A DAY (1-0-2)
     Route: 048
     Dates: start: 201006
  3. RISPERIDONE [Suspect]
     Active Substance: RISPERIDONE
     Indication: Product used for unknown indication
     Dosage: 2 MILLIGRAM, ONCE A DAY (1-0-1)
     Route: 048
     Dates: start: 200903
  4. LORAZEPAM [Suspect]
     Active Substance: LORAZEPAM
     Indication: Product used for unknown indication
     Dosage: 3 MILLIGRAM, ONCE A DAY (3 X 1 DAILY DOSE: 3 MG MILLIGRAM(S) EVERY DAY)
     Route: 048
     Dates: start: 201006
  5. CARBAMAZEPINE [Suspect]
     Active Substance: CARBAMAZEPINE
     Indication: Product used for unknown indication
     Dosage: 204 MILLIGRAM, ONCE A DAY (1-1-0 DAILY DOSE: 400 MG MILLIGRAM(S) EVERY DAY)
     Route: 048
     Dates: start: 200903
  6. THIORIDAZINE [Suspect]
     Active Substance: THIORIDAZINE
     Indication: Product used for unknown indication
     Dosage: 300 MILLIGRAM, ONCE A DAY
     Route: 048
     Dates: start: 200711
  7. PERAZINE DIMALONATE [Suspect]
     Active Substance: PERAZINE DIMALONATE
     Indication: Product used for unknown indication
     Dosage: 100 MILLIGRAM, ONCE A DAY
     Route: 048
     Dates: start: 201009
  8. PERAZINE DIMALONATE [Suspect]
     Active Substance: PERAZINE DIMALONATE
     Dosage: 200 MILLIGRAM, ONCE A DAY (1-0-2 DAILY DOSE: 200 MG MILLIGRAM(S) EVERY DAY)
     Route: 048
     Dates: start: 201009
  9. AKINETON [Suspect]
     Active Substance: BIPERIDEN HYDROCHLORIDE
     Indication: Product used for unknown indication
     Dosage: 4 MILLIGRAM, ONCE A DAY (1/2-0-1/2 DAILY DOSE: 4 MG MILLIGRAM(S) EVERY DAY)
     Route: 048
     Dates: start: 200504
  10. CEFUROXIME [Concomitant]
     Active Substance: CEFUROXIME
     Indication: Bronchitis
     Dosage: UNK
     Route: 048
     Dates: start: 20110208

REACTIONS (3)
  - Acute kidney injury [Recovered/Resolved]
  - Acute hepatic failure [Recovered/Resolved]
  - Thrombocytopenia [Recovered/Resolved]

NARRATIVE: CASE EVENT DATE: 20110211
